FAERS Safety Report 6255771-9 (Version None)
Quarter: 2009Q3

REPORT INFORMATION
  Report Type: 
  Country: None (occurrence: None)
  Receive Date: 20090701
  Receipt Date: 20090618
  Transmission Date: 20100115
  Serious: No
  Sender: FDA-Public Use
  Company Number: 2009-199140-NL

PATIENT
  Age: 25 Year
  Sex: Female

DRUGS (4)
  1. ETONOGESTREL [Suspect]
     Dosage: DF
     Dates: start: 20030101, end: 20060101
  2. ETONOGESTREL [Suspect]
     Dosage: DF
     Dates: start: 20060101, end: 20090618
  3. ETONOGESTREL [Suspect]
     Dosage: DF
     Dates: start: 20090618
  4. ANTIDEPRESSANTS [Concomitant]

REACTIONS (10)
  - ABORTION SPONTANEOUS [None]
  - AMENORRHOEA [None]
  - DEVICE FAILURE [None]
  - DRUG EXPOSURE DURING PREGNANCY [None]
  - MALAISE [None]
  - METABOLIC DISORDER [None]
  - PARTNER STRESS [None]
  - PREGNANCY WITH IMPLANT CONTRACEPTIVE [None]
  - STRESS [None]
  - WEIGHT DECREASED [None]
